FAERS Safety Report 4405537-7 (Version None)
Quarter: 2004Q3

REPORT INFORMATION
  Report Type: 
  Country: None (occurrence: None)
  Receive Date: 20040723
  Receipt Date: 20030925
  Transmission Date: 20050211
  Serious: No
  Sender: FDA-Public Use
  Company Number: US-GLAXOSMITHKLINE-A0427517A

PATIENT
  Age: 67 Year
  Sex: Female

DRUGS (8)
  1. AVANDIA [Suspect]
     Dosage: 4MG PER DAY
     Route: 048
  2. DARVOCET [Concomitant]
  3. CELEBREX [Concomitant]
  4. BLOOD PRESSURE MEDICATION [Concomitant]
  5. SYNTHROID [Concomitant]
  6. CHOLESTEROL REDUCING AGENT [Concomitant]
  7. GLUCOVANCE [Concomitant]
  8. ACID REFLUX MED. [Concomitant]

REACTIONS (1)
  - WEIGHT INCREASED [None]
